FAERS Safety Report 15472271 (Version 4)
Quarter: 2019Q2

REPORT INFORMATION
  Report Type: Spontaneous
  Country: US (occurrence: US)
  Receive Date: 20181008
  Receipt Date: 20190402
  Transmission Date: 20190711
  Serious: No
  Sender: FDA-Public Use
  Company Number: US-BAUSCH-BL-2018-026163

PATIENT
  Sex: Female
  Weight: 65.83 kg

DRUGS (5)
  1. NORITATE [Suspect]
     Active Substance: METRONIDAZOLE
     Dosage: CURRENT NEW TUBE, EVERY MORNING AFTER WASHING FACE
     Route: 061
     Dates: start: 2018, end: 2018
  2. NORITATE [Suspect]
     Active Substance: METRONIDAZOLE
     Indication: ROSACEA
     Dosage: STARTED TEN YEARS BACK, EVERY MORNING AFTER WASHING FACE
     Route: 061
  3. NORITATE [Suspect]
     Active Substance: METRONIDAZOLE
     Dosage: REPLACEMENT TUBE, EVERY MORNING AFTER WASHING FACE
     Route: 061
     Dates: start: 2018, end: 2018
  4. NORITATE [Suspect]
     Active Substance: METRONIDAZOLE
     Dosage: OLD TUBE, EVERY MORNING AFTER WASHING FACE
     Route: 061
  5. NORITATE [Suspect]
     Active Substance: METRONIDAZOLE
     Dosage: OLD TUBE, EVERY MORNING AFTER WASHING FACE
     Route: 061

REACTIONS (4)
  - Rosacea [Recovered/Resolved]
  - Product physical consistency issue [Unknown]
  - Expired product administered [Unknown]
  - Product quality issue [Unknown]

NARRATIVE: CASE EVENT DATE: 2018
